FAERS Safety Report 5130992-7 (Version None)
Quarter: 2006Q4

REPORT INFORMATION
  Report Type: 
  Country: None (occurrence: None)
  Receive Date: 20060829
  Receipt Date: 20060712
  Transmission Date: 20070319
  Serious: Yes (Death)
  Sender: FDA-Public Use
  Company Number: PHEH2006US08933

PATIENT
  Age: 70 Year
  Sex: Female

DRUGS (1)
  1. EXJADE [Suspect]
     Indication: HEPATIC NEOPLASM
     Dosage: 1500 MG, QD, ORAL
     Route: 048
     Dates: start: 20060120

REACTIONS (4)
  - HEPATIC NEOPLASM [None]
  - MALIGNANT NEOPLASM PROGRESSION [None]
  - MALIGNANT SPLENIC NEOPLASM [None]
  - RESPIRATORY ARREST [None]
